FAERS Safety Report 21850916 (Version 1)
Quarter: 2023Q1

REPORT INFORMATION
  Report Type: Spontaneous
  Country: US (occurrence: US)
  Receive Date: 20230111
  Receipt Date: 20230111
  Transmission Date: 20230417
  Serious: No
  Sender: FDA-Public Use
  Company Number: US-TEVA-2023-US-2844150

PATIENT
  Age: 89 Year
  Sex: Male
  Weight: 65.77 kg

DRUGS (1)
  1. ALBUTEROL SULFATE [Suspect]
     Active Substance: ALBUTEROL SULFATE
     Indication: Wheezing
     Dosage: 90 MCG/DOSE, 2 PUFFS BY MOUTH EVERY FOUR HOURS
     Route: 048
     Dates: start: 2020

REACTIONS (2)
  - Therapeutic product effect delayed [Unknown]
  - Product use in unapproved indication [Not Recovered/Not Resolved]
